FAERS Safety Report 9219670 (Version 1)
Quarter: 2013Q1

REPORT INFORMATION
  Report Type: Spontaneous
  Country: US (occurrence: None)
  Receive Date: 20120827
  Receipt Date: 20120827
  Transmission Date: 20140127
  Serious: Yes (Hospitalization)
  Sender: FDA-Public Use
  Company Number: KV201200092

PATIENT
  Age: 26 Year
  Sex: Female

DRUGS (11)
  1. MAKENA [Suspect]
     Indication: PREMATURE DELIVERY
     Dates: start: 201203
  2. PRENATAL VITAMINS [Concomitant]
  3. BIOTIN [Concomitant]
  4. MINERAL NOS [Concomitant]
  5. NICOTINIC ACID [Concomitant]
  6. NICOTINIC ACID [Concomitant]
  7. RETINOL [Concomitant]
  8. TOCOPHEROL [Concomitant]
  9. VITAMIN B NOS [Concomitant]
  10. VITAMIN D NOS [Concomitant]
  11. ABSCORBIC ACID [Concomitant]

REACTIONS (1)
  - Premature labour [None]
